FAERS Safety Report 11279151 (Version 1)
Quarter: 2015Q3

REPORT INFORMATION
  Report Type: Spontaneous
  Country: US (occurrence: US)
  Receive Date: 20150717
  Receipt Date: 20150717
  Transmission Date: 20151125
  Serious: Yes (Other)
  Sender: FDA-Public Use
  Company Number: US-MYLANLABS-2015M1020207

PATIENT

DRUGS (2)
  1. CLOZAPINE. [Suspect]
     Active Substance: CLOZAPINE
     Indication: SCHIZOAFFECTIVE DISORDER
     Dosage: 300 MG, QD
     Dates: start: 201501, end: 20150421
  2. LITHIUM. [Concomitant]
     Active Substance: LITHIUM
     Dosage: 450 MG, BID

REACTIONS (3)
  - Weight increased [Not Recovered/Not Resolved]
  - Sedation [Not Recovered/Not Resolved]
  - Drug ineffective [Not Recovered/Not Resolved]
